FAERS Safety Report 11219320 (Version 3)
Quarter: 2017Q1

REPORT INFORMATION
  Report Type: Spontaneous
  Country: US (occurrence: US)
  Receive Date: 20150625
  Receipt Date: 20170127
  Transmission Date: 20170428
  Serious: No
  Sender: FDA-Public Use
  Company Number: US-PFIZER INC-2015209482

PATIENT
  Age: 52 Year
  Sex: Female

DRUGS (25)
  1. FIORICET [Concomitant]
     Active Substance: ACETAMINOPHEN\BUTALBITAL\CAFFEINE
     Dosage: AS NEEDED, [BUTALBITAL: 50 MG] / [CAFFEINE: 40 MG] / [PARACETAMOL: 300 MG]
     Route: 048
  2. HUMALOG [Concomitant]
     Active Substance: INSULIN LISPRO
     Dosage: 44 IU, DAILY (5 UNITS, 3 TIMES A DAY BEFORE MEALS, 7 U AT BREAKFAST, 17 U AT LUNCH, 15 U AT DINNER)
     Route: 058
  3. TENORMIN [Concomitant]
     Active Substance: ATENOLOL
     Dosage: 100 MG, DAILY
     Route: 048
  4. PRILOSEC [Concomitant]
     Active Substance: OMEPRAZOLE MAGNESIUM
     Dosage: 20 MG, DAILY
     Route: 048
  5. LYRICA [Suspect]
     Active Substance: PREGABALIN
     Dosage: 200 MG, 3X/DAY
     Route: 048
  6. REFRESH OPTIVE ADVANCED [Concomitant]
     Active Substance: CARBOXYMETHYLCELLULOSE SODIUM\GLYCERIN\POLYSORBATE 80
     Indication: EYE BURNS
  7. GONIOSOFT [Concomitant]
     Active Substance: HYPROMELLOSES
     Dosage: 1 GTT, AS NEEDED
     Route: 047
  8. MIRALAX [Concomitant]
     Active Substance: POLYETHYLENE GLYCOL 3350
     Dosage: 17 G, DAILY
     Route: 048
  9. TOPAMAX [Concomitant]
     Active Substance: TOPIRAMATE
     Dosage: 25 MG, 1X/DAY (EVERY MORNING)
     Route: 048
  10. ALPHAGAN P [Concomitant]
     Active Substance: BRIMONIDINE TARTRATE
     Dosage: 2 GTT, 3X/DAY (1 DROP TO BOTH EYES 3 TIMES A DAY)
     Route: 047
  11. HYDRODIURIL [Concomitant]
     Active Substance: HYDROCHLOROTHIAZIDE
     Dosage: 25 MG, DAILY
     Route: 048
  12. LANTUS [Concomitant]
     Active Substance: INSULIN GLARGINE
     Dosage: 70 IU, 2X/DAY
     Route: 058
  13. COZAAR [Concomitant]
     Active Substance: LOSARTAN POTASSIUM
     Dosage: 100 MG, DAILY
     Route: 048
  14. COMPAZINE [Concomitant]
     Active Substance: PROCHLORPERAZINE MALEATE
     Indication: NAUSEA
     Dosage: 10MG 3X/DAY AS NEEDED
     Route: 048
  15. XALATAN [Concomitant]
     Active Substance: LATANOPROST
     Dosage: 2 GTT, 1X/DAY (AT BEDTIME)
     Route: 047
  16. TOPAMAX [Concomitant]
     Active Substance: TOPIRAMATE
     Dosage: 100 MG, 1X/DAY (AT BEDTIME)
     Route: 048
  17. COSOPT [Concomitant]
     Active Substance: DORZOLAMIDE HYDROCHLORIDE\TIMOLOL MALEATE
     Dosage: 2 GTT, 2X/DAY [DORZOLAMIDE HYDROCHLORIDE: 22.3 MG/ML] / [TIMOLOL MALEATE: 6.8 MG/ML]
     Route: 047
  18. PATANOL [Concomitant]
     Active Substance: OLOPATADINE HYDROCHLORIDE
     Dosage: 1 GTT, 2X/DAY
  19. CRESTOR [Concomitant]
     Active Substance: ROSUVASTATIN CALCIUM
     Dosage: 40 MG, DAILY
     Route: 048
  20. REFRESH OPTIVE ADVANCED [Concomitant]
     Active Substance: CARBOXYMETHYLCELLULOSE SODIUM\GLYCERIN\POLYSORBATE 80
     Indication: EYE IRRITATION
     Dosage: 1 GTT, AS NEEDED  [CARMELLOSE SODIUM: 0.5%] / [GLYCEROL: 1%] / [POLYSORBATE 80: 0.5%]
     Route: 047
  21. ZETIA [Concomitant]
     Active Substance: EZETIMIBE
     Dosage: 10 MG, DAILY
     Route: 048
  22. GONAK [Concomitant]
     Dosage: 1 GTT, AS NEEDED
     Route: 047
  23. PRED FORTE [Concomitant]
     Active Substance: PREDNISOLONE ACETATE
     Dosage: 1 GTT, 2X/DAY (1 DROP INTO THE LEFT EYE 2 TIMES A DAY)
     Route: 047
  24. NORVASC [Concomitant]
     Active Substance: AMLODIPINE BESYLATE
     Indication: HYPERTENSION
     Dosage: 2.5 MG, TAKEN AT DINNER, AS NEEDED IF BP IS HIGHER THAN 140 MMHG
  25. ASPIRIN. [Concomitant]
     Active Substance: ASPIRIN
     Dosage: 81 MG, DAILY
     Route: 048

REACTIONS (1)
  - Pain in extremity [Unknown]
